FAERS Safety Report 9380373 (Version 3)
Quarter: 2013Q3

REPORT INFORMATION
  Report Type: Spontaneous
  Country: US (occurrence: US)
  Receive Date: 20130702
  Receipt Date: 20130802
  Transmission Date: 20140515
  Serious: Yes (Other)
  Sender: FDA-Public Use
  Company Number: US-BAYER-2013-081092

PATIENT
  Age: 38 Year
  Sex: Female
  Weight: 68.48 kg

DRUGS (1)
  1. MIRENA [Suspect]
     Indication: CONTRACEPTION
     Dosage: 20 MCG/24HR, CONT
     Route: 015
     Dates: start: 20121002, end: 20130627

REACTIONS (10)
  - Pain [None]
  - Device deployment issue [None]
  - Discomfort [None]
  - Menorrhagia [None]
  - Abdominal pain lower [None]
  - Hormone level abnormal [None]
  - Cardiovascular disorder [None]
  - Hypoaesthesia [None]
  - Fatigue [None]
  - Metrorrhagia [None]
